FAERS Safety Report 7991005-2 (Version None)
Quarter: 2011Q4

REPORT INFORMATION
  Report Type: 
  Country: None (occurrence: None)
  Receive Date: 20111219
  Receipt Date: 20111208
  Transmission Date: 20120403
  Serious: Yes (Hospitalization)
  Sender: FDA-Public Use
  Company Number: DE-B.I. PHARMACEUTICALS,INC./RIDGEFIELD-2011-DE-06623DE

PATIENT
  Age: 73 Year
  Sex: Male
  Weight: 96 kg

DRUGS (11)
  1. AMARYL [Concomitant]
  2. PRADAXA [Suspect]
     Indication: ATRIAL FIBRILLATION
     Dosage: 300 MG
     Dates: start: 20111118
  3. PRADAXA [Suspect]
     Dosage: 220 MG
     Dates: start: 20111125
  4. PHANTOPRAZOL [Concomitant]
  5. ABUDART [Concomitant]
  6. LERCANIDIPINE [Concomitant]
  7. SOTALOL HCL [Concomitant]
  8. METFORMIN HYDROCHLORIDE [Concomitant]
  9. DEILIX PLUS [Concomitant]
  10. ROCALTROL [Concomitant]
  11. NEPHROTRANS [Concomitant]

REACTIONS (2)
  - BLOOD URINE [None]
  - DEVICE CAPTURING ISSUE [None]
